FAERS Safety Report 18306763 (Version 1)
Quarter: 2020Q3

REPORT INFORMATION
  Report Type: Spontaneous
  Country: US (occurrence: US)
  Receive Date: 20200923
  Receipt Date: 20200923
  Transmission Date: 20201103
  Serious: Yes (Hospitalization)
  Sender: FDA-Public Use
  Company Number: None

PATIENT
  Age: 78 Year
  Sex: Male

DRUGS (1)
  1. WARFARIN (WARFARIN NA (EXELAN) 5MG TAB) [Suspect]
     Active Substance: WARFARIN SODIUM
     Indication: ATRIAL FIBRILLATION
     Route: 048

REACTIONS (10)
  - Vomiting [None]
  - Haemorrhage [None]
  - Nausea [None]
  - Haematocrit decreased [None]
  - Dyspnoea [None]
  - Melaena [None]
  - Decreased appetite [None]
  - Haemoglobin decreased [None]
  - Fatigue [None]
  - Chest pain [None]

NARRATIVE: CASE EVENT DATE: 20190429
